FAERS Safety Report 12243321 (Version 1)
Quarter: 2016Q2

REPORT INFORMATION
  Report Type: Spontaneous
  Country: US (occurrence: US)
  Receive Date: 20160406
  Receipt Date: 20160406
  Transmission Date: 20160815
  Serious: No
  Sender: FDA-Public Use
  Company Number: US-SA-2015SA221992

PATIENT
  Age: 78 Year
  Sex: Female

DRUGS (1)
  1. ALLEGRA-D [Suspect]
     Active Substance: FEXOFENADINE\PSEUDOEPHEDRINE
     Indication: COUGH
     Dosage: TAKEN FROM: 4 DAYS
     Route: 048

REACTIONS (5)
  - Asthenia [Unknown]
  - Nausea [Unknown]
  - Insomnia [Unknown]
  - Sedation [Unknown]
  - Feeling abnormal [Unknown]
